FAERS Safety Report 5034790-4 (Version None)
Quarter: 2006Q2

REPORT INFORMATION
  Report Type: 
  Country: None (occurrence: None)
  Receive Date: 20060503
  Receipt Date: 20050604
  Transmission Date: 20061013
  Serious: Yes (Other)
  Sender: FDA-Public Use
  Company Number: PHEH2005US06391

PATIENT
  Age: 28 Year
  Sex: Female
  Weight: 83.4 kg

DRUGS (3)
  1. LAMISIL [Suspect]
     Indication: DRY SKIN
     Dosage: BID, TOPICAL
     Route: 061
     Dates: start: 20050603
  2. ALLEGRA [Concomitant]
  3. SINGULAIR [Concomitant]

REACTIONS (3)
  - PRURITUS [None]
  - RASH ERYTHEMATOUS [None]
  - URTICARIA [None]
